FAERS Safety Report 6394134-2 (Version None)
Quarter: 2009Q4

REPORT INFORMATION
  Report Type: 
  Country: None (occurrence: None)
  Receive Date: 20091008
  Receipt Date: 20090924
  Transmission Date: 20100525
  Serious: Yes (Death, Life-Threatening)
  Sender: FDA-Public Use
  Company Number: JP-ASTRAZENECA-2008AP03924

PATIENT
  Age: 26923 Day
  Sex: Male

DRUGS (20)
  1. MEROPENEM [Suspect]
     Route: 042
     Dates: start: 20080322, end: 20080402
  2. AMPHOTERICIN B [Suspect]
     Indication: FEBRILE NEUTROPENIA
     Route: 042
     Dates: start: 20080322, end: 20080331
  3. AMPHOTERICIN B [Suspect]
     Indication: FUNGAL INFECTION
     Route: 042
     Dates: start: 20080322, end: 20080331
  4. CALONAL [Suspect]
     Route: 048
     Dates: start: 20080319, end: 20080325
  5. LOXONIN [Suspect]
     Route: 048
     Dates: start: 20080327, end: 20080330
  6. RED BLOOD CELLS [Concomitant]
     Route: 042
     Dates: start: 20080313, end: 20080324
  7. GASTER D [Concomitant]
     Route: 048
     Dates: start: 20080314, end: 20080331
  8. BACTRAMIN [Concomitant]
     Dosage: 1 DOSAGE FORM 1 IN I D
     Route: 048
     Dates: start: 20080314, end: 20080331
  9. SOLDEM 3A [Concomitant]
     Route: 042
     Dates: start: 20080319, end: 20080324
  10. SOLDEM 3A [Concomitant]
     Route: 042
     Dates: start: 20080329, end: 20080402
  11. MAXIPIME [Concomitant]
     Route: 042
     Dates: start: 20080319, end: 20080322
  12. ISOTONIC SODIUM CHLORIDE [Concomitant]
     Route: 042
     Dates: start: 20080319, end: 20080322
  13. ISOTONIC SODIUM CHLORIDE [Concomitant]
     Route: 042
     Dates: start: 20080322, end: 20080402
  14. CLEITON [Concomitant]
     Route: 042
     Dates: start: 20080319, end: 20080401
  15. CONCENTRATED HUMAN BLOOD PLATELET [Concomitant]
     Route: 042
     Dates: start: 20080321, end: 20080402
  16. PN TWIN [Concomitant]
     Route: 042
     Dates: start: 20080325, end: 20080328
  17. MUCOSOLVAN [Concomitant]
     Route: 048
     Dates: start: 20080328, end: 20080331
  18. SUNRABIN [Concomitant]
     Dates: start: 20080314
  19. DAUNOMYCIN [Concomitant]
     Dates: start: 20080314
  20. NEUTROGIN [Concomitant]
     Dates: start: 20080325

REACTIONS (4)
  - BLOOD CREATININE INCREASED [None]
  - BLOOD UREA INCREASED [None]
  - PROTEIN URINE PRESENT [None]
  - SEPSIS [None]
